FAERS Safety Report 12281782 (Version 2)
Quarter: 2016Q3

REPORT INFORMATION
  Report Type: Spontaneous
  Country: US (occurrence: US)
  Receive Date: 20160419
  Receipt Date: 20160715
  Transmission Date: 20161109
  Serious: No
  Sender: FDA-Public Use
  Company Number: US-TEVA-644007USA

PATIENT
  Age: 49 Year
  Sex: Female

DRUGS (2)
  1. CLARINEX [Concomitant]
     Active Substance: DESLORATADINE
  2. ZECUITY [Suspect]
     Active Substance: SUMATRIPTAN SUCCINATE
     Indication: MIGRAINE
     Route: 062
     Dates: start: 20160126, end: 20160126

REACTIONS (5)
  - Drug ineffective [Recovered/Resolved]
  - Application site pruritus [Unknown]
  - Application site discolouration [Not Recovered/Not Resolved]
  - Application site dryness [Not Recovered/Not Resolved]
  - Application site erythema [Recovered/Resolved]

NARRATIVE: CASE EVENT DATE: 20160126
